FAERS Safety Report 17360626 (Version 1)
Quarter: 2020Q1

REPORT INFORMATION
  Report Type: Spontaneous
  Country: US (occurrence: US)
  Receive Date: 20200203
  Receipt Date: 20200203
  Transmission Date: 20200409
  Serious: Yes (Hospitalization)
  Sender: FDA-Public Use
  Company Number: US-STRIDES ARCOLAB LIMITED-2020SP000984

PATIENT
  Age: 55 Year
  Sex: Male

DRUGS (10)
  1. ABACAVIR W/LAMIVUDINE [Interacting]
     Active Substance: ABACAVIR\LAMIVUDINE
     Indication: ANTIRETROVIRAL THERAPY
     Dosage: 600/300 MG/DAY
     Route: 048
  2. RITONAVIR. [Interacting]
     Active Substance: RITONAVIR
     Indication: HIV INFECTION
  3. RITONAVIR. [Interacting]
     Active Substance: RITONAVIR
     Indication: ANTIRETROVIRAL THERAPY
     Dosage: 100 MILLIGRAM PER DAY
     Route: 048
  4. LIDOCAINE. [Suspect]
     Active Substance: LIDOCAINE
     Indication: PAIN MANAGEMENT
     Dosage: 120 MILLIGRAM, BOLUS
     Route: 042
  5. ATAZANAVIR. [Interacting]
     Active Substance: ATAZANAVIR
     Indication: ANTIRETROVIRAL THERAPY
     Dosage: 300 MILLIGRAM PER DAY
     Route: 048
  6. ATAZANAVIR. [Interacting]
     Active Substance: ATAZANAVIR
     Indication: HIV INFECTION
  7. FENTANYL. [Interacting]
     Active Substance: FENTANYL
     Indication: ANALGESIC THERAPY
     Dosage: UNK
     Route: 065
  8. LIDOCAINE. [Interacting]
     Active Substance: LIDOCAINE
     Dosage: 1 MG/KG/H (INFUSION) IN POST-ANAESTHESIA CARE UNIT
     Route: 042
  9. ABACAVIR W/LAMIVUDINE [Interacting]
     Active Substance: ABACAVIR\LAMIVUDINE
     Indication: HIV INFECTION
  10. LIDOCAINE. [Interacting]
     Active Substance: LIDOCAINE
     Indication: AORTIC BYPASS
     Dosage: UNK; INFUSION AT A RATE OF 2 MG/KG/H (TOTAL DOSE 460 MG)
     Route: 042

REACTIONS (10)
  - Drug interaction [Unknown]
  - Sinus tachycardia [Unknown]
  - Loss of consciousness [Unknown]
  - Hypertension [Unknown]
  - Dizziness [Unknown]
  - Oxygen saturation decreased [Recovered/Resolved]
  - Feeling hot [Unknown]
  - Hyperhidrosis [Unknown]
  - Unresponsive to stimuli [Recovered/Resolved]
  - Toxicity to various agents [Unknown]
